FAERS Safety Report 4779061-6 (Version None)
Quarter: 2005Q3

REPORT INFORMATION
  Report Type: 
  Country: None (occurrence: None)
  Receive Date: 20050923
  Receipt Date: 20050916
  Transmission Date: 20060218
  Serious: Yes (Life-Threatening)
  Sender: FDA-Public Use
  Company Number: DE-2005-019311

PATIENT
  Age: 75 Year
  Sex: Male

DRUGS (1)
  1. MAGNEVIST [Suspect]
     Dosage: 25 ML, 1 DOSE, INTRAVENOUS
     Route: 042
     Dates: start: 20050916, end: 20050916

REACTIONS (5)
  - ANAPHYLACTIC REACTION [None]
  - CARDIAC ARREST [None]
  - CARDIOVASCULAR DISORDER [None]
  - COMA [None]
  - TRACHEAL OEDEMA [None]
